FAERS Safety Report 6507790-2 (Version None)
Quarter: 2009Q4

REPORT INFORMATION
  Report Type: 
  Country: None (occurrence: None)
  Receive Date: 20091221
  Receipt Date: 20091214
  Transmission Date: 20100525
  Serious: Yes (Hospitalization)
  Sender: FDA-Public Use
  Company Number: US-MERCK-0912USA02087

PATIENT
  Age: 65 Year
  Sex: Male

DRUGS (3)
  1. DECADRON [Suspect]
     Indication: BRAIN OEDEMA
     Route: 048
     Dates: start: 20061106
  2. RITUXIMAB [Concomitant]
     Route: 065
  3. CELLCEPT [Concomitant]
     Route: 065
     Dates: start: 20010101, end: 20061101

REACTIONS (8)
  - CYTOMEGALOVIRUS COLITIS [None]
  - DIARRHOEA [None]
  - HYPERPLASIA [None]
  - NEPHROTIC SYNDROME [None]
  - NEUTROPENIA [None]
  - PNEUMONIA CYTOMEGALOVIRAL [None]
  - THROMBOCYTOPENIA [None]
  - VIRAL HAEMORRHAGIC CYSTITIS [None]
